FAERS Safety Report 4517159-8 (Version None)
Quarter: 2004Q4

REPORT INFORMATION
  Report Type: 
  Country: None (occurrence: None)
  Receive Date: 20041130
  Receipt Date: 20041123
  Transmission Date: 20050328
  Serious: Yes (Death)
  Sender: FDA-Public Use
  Company Number: GBS041015787

PATIENT
  Age: 71 Year
  Sex: Male
  Weight: 83 kg

DRUGS (10)
  1. XIGRIS [Suspect]
     Indication: SEPSIS
     Dosage: 0.4 MG/ML
     Dates: start: 20041012
  2. ADRENALIN IN OIL INJ [Concomitant]
  3. NORADRENALINE [Concomitant]
  4. HEPARIN [Concomitant]
  5. GTN [Concomitant]
  6. PROPOFOL [Concomitant]
  7. MORPHINE [Concomitant]
  8. HYDROCORTISONE [Concomitant]
  9. CEFUROXIME [Concomitant]
  10. METRONIDAZOLE [Concomitant]

REACTIONS (6)
  - CORONARY ARTERY ATHEROSCLEROSIS [None]
  - CORONARY ARTERY THROMBOSIS [None]
  - MEDICATION ERROR [None]
  - MYOCARDIAL INFARCTION [None]
  - OVERDOSE [None]
  - PULMONARY CONGESTION [None]
